FAERS Safety Report 8726170 (Version 2)
Quarter: 2012Q4

REPORT INFORMATION
  Report Type: Spontaneous
  Country: JP (occurrence: None)
  Receive Date: 20120730
  Receipt Date: 20120814
  Transmission Date: 20130627
  Serious: Yes (Other)
  Sender: FDA-Public Use
  Company Number: DSA_58645_2012

PATIENT

DRUGS (3)
  1. FLUOROURACIL [Suspect]
     Indication: NEOPLASM MALIGNANT
     Dosage: (DF)
     Dates: start: 2009
  2. CISPLATIN [Suspect]
     Indication: NEOPLASM MALIGNANT
     Dosage: (DF)
     Dates: start: 2009
  3. DOCETAXEL [Suspect]
     Indication: NEOPLASM MALIGNANT
     Dosage: (DF)
     Dates: start: 2009

REACTIONS (1)
  - FALL [None]
